FAERS Safety Report 9025213 (Version 2)
Quarter: 2013Q1

REPORT INFORMATION
  Report Type: Spontaneous
  Country: CA (occurrence: CA)
  Receive Date: 20130117
  Receipt Date: 20130117
  Transmission Date: 20140127
  Serious: Yes (Other)
  Sender: FDA-Public Use
  Company Number: CA-ROCHE-GNE296661

PATIENT
  Age: 62 Year
  Sex: Male

DRUGS (1)
  1. XOLAIR [Suspect]
     Indication: ASTHMA
     Dosage: 375 MG, Q2W
     Route: 058
     Dates: start: 20070110

REACTIONS (7)
  - Syncope [Unknown]
  - Head injury [Unknown]
  - Loss of consciousness [Unknown]
  - Feeling hot [Unknown]
  - Vision blurred [Unknown]
  - Bundle branch block right [Unknown]
  - Nausea [Unknown]
